FAERS Safety Report 12893229 (Version 1)
Quarter: 2016Q4

REPORT INFORMATION
  Report Type: Report from Study
  Country: ES (occurrence: ES)
  Receive Date: 20161028
  Receipt Date: 20161028
  Transmission Date: 20170207
  Serious: Yes (Other)
  Sender: FDA-Public Use
  Company Number: ES-PFIZER INC-2016490611

PATIENT
  Age: 57 Year
  Sex: Female

DRUGS (5)
  1. FLUOROURACIL. [Suspect]
     Active Substance: FLUOROURACIL
     Indication: ADENOCARCINOMA OF COLON
     Dosage: 400 MG/M2, CYCLIC (ON DAY EVERY 14 DAYS)
     Route: 040
     Dates: start: 201206
  2. IRINOTECAN HCL [Suspect]
     Active Substance: IRINOTECAN HYDROCHLORIDE
     Indication: ADENOCARCINOMA OF COLON
     Dosage: 180 MG/M2, CYCLIC (ON DAY 1, EVERY 14 DAYS)
     Route: 041
     Dates: start: 201206
  3. CALCIUM FOLINATE [Suspect]
     Active Substance: LEUCOVORIN CALCIUM
     Indication: ADENOCARCINOMA OF COLON
     Dosage: 200 MG/M2, CYCLIC (ON DAY 1, EVERY 14 DAYS)
     Route: 042
     Dates: start: 201206
  4. FLUOROURACIL. [Suspect]
     Active Substance: FLUOROURACIL
     Dosage: 2400 MG/M2, CYCLIC (ON DAY 1, EVERY 2 WEEKS)
     Route: 041
     Dates: start: 201206
  5. AFLIBERCEPT [Suspect]
     Active Substance: AFLIBERCEPT
     Indication: ADENOCARCINOMA OF COLON
     Dosage: 4 MG/M2, CYCLIC (ON DAY 1, EVERY 2 WEEKS)
     Route: 042

REACTIONS (4)
  - Neutropenia [Unknown]
  - Respiratory tract infection [Unknown]
  - Pharyngotonsillitis [Unknown]
  - Neurotoxicity [Unknown]
